FAERS Safety Report 8192599-7 (Version None)
Quarter: 2012Q1

REPORT INFORMATION
  Report Type: 
  Country: None (occurrence: None)
  Receive Date: 20120221
  Receipt Date: 20111102
  Transmission Date: 20120608
  Serious: No
  Sender: FDA-Public Use
  Company Number: 1000025161

PATIENT
  Age: 40 Year
  Sex: Male

DRUGS (4)
  1. DIOVAN [Concomitant]
  2. VIIBRYD [Suspect]
     Indication: DEPRESSION
     Dosage: 10 MG (10 MG, 1 IN 1 D), ORAL
     Route: 048
     Dates: start: 20110101, end: 20110101
  3. CORTISONE (CORTISONE) (CORTISONE) [Concomitant]
  4. LEVOXYL (LEVOTHYROXINE SODIUM) (LEVOTHYROXINE SODIUM) [Concomitant]

REACTIONS (2)
  - PARAESTHESIA [None]
  - ABDOMINAL DISTENSION [None]
